FAERS Safety Report 6941397-8 (Version None)
Quarter: 2010Q3

REPORT INFORMATION
  Report Type: 
  Country: None (occurrence: None)
  Receive Date: 20100824
  Receipt Date: 20100824
  Transmission Date: 20110219
  Serious: Yes (Death)
  Sender: FDA-Public Use
  Company Number: None

PATIENT
  Age: 65 Year
  Sex: Male
  Weight: 82.6454 kg

DRUGS (15)
  1. CAPECITABINE [Suspect]
     Indication: PANCREATIC CARCINOMA METASTATIC
     Dosage: 1500MG/M2; D1-14; ORAL
     Route: 048
     Dates: start: 20100127, end: 20100528
  2. OXALIPLATIN [Suspect]
     Indication: PANCREATIC CARCINOMA METASTATIC
     Dosage: 130MG/M2; D1; IV
     Route: 042
     Dates: start: 20100127, end: 20100512
  3. AMOXILLIN-POT CLAVULANTE [Concomitant]
  4. COMPAZINE [Concomitant]
  5. LATANOPROST [Concomitant]
  6. LORAZEPAM [Concomitant]
  7. LOTEPREDNOL ETABONATE [Concomitant]
  8. ONDANSETRON HCL [Concomitant]
  9. PROPRANOLOL [Concomitant]
  10. REPAGLINIDE [Concomitant]
  11. ROSUVASTATIN [Concomitant]
  12. SERAX [Concomitant]
  13. SILDENAFIL [Concomitant]
  14. ACETAMINOPHEN [Concomitant]
  15. LOPERAMIDE [Concomitant]

REACTIONS (1)
  - ARRHYTHMIA [None]
